FAERS Safety Report 6191353-5 (Version None)
Quarter: 2009Q2

REPORT INFORMATION
  Report Type: 
  Country: None (occurrence: None)
  Receive Date: 20090513
  Receipt Date: 20090513
  Transmission Date: 20091009
  Serious: No
  Sender: FDA-Public Use
  Company Number: None

PATIENT
  Age: 39 Year
  Sex: Female
  Weight: 90.7194 kg

DRUGS (1)
  1. GOLYTELY [Suspect]
     Indication: BOWEL PREPARATION
     Dosage: 8 OZ EVERY 15 MIN ORAL
     Route: 048
     Dates: start: 20090429

REACTIONS (1)
  - VOMITING [None]
